FAERS Safety Report 9975839 (Version 1)
Quarter: 2014Q1

REPORT INFORMATION
  Report Type: Spontaneous
  Country: US (occurrence: US)
  Receive Date: 20140306
  Receipt Date: 20140306
  Transmission Date: 20141002
  Serious: No
  Sender: FDA-Public Use
  Company Number: US-009507513-1403USA001333

PATIENT
  Sex: Female

DRUGS (9)
  1. ZETIA [Suspect]
     Indication: BLOOD CHOLESTEROL INCREASED
     Dosage: 10 MG, QD
     Route: 048
     Dates: start: 2010
  2. INSULIN [Concomitant]
  3. LIPITOR [Concomitant]
  4. ASPIRIN [Concomitant]
  5. ACCUPRIL [Concomitant]
  6. TRIAMTERENE [Concomitant]
  7. NORVASC [Concomitant]
  8. ONGLYZA [Concomitant]
  9. ACTOS [Concomitant]

REACTIONS (1)
  - Blood cholesterol increased [Unknown]
